FAERS Safety Report 23017600 (Version 1)
Quarter: 2023Q4

REPORT INFORMATION
  Report Type: Spontaneous
  Country: US (occurrence: None)
  Receive Date: 20231003
  Receipt Date: 20231003
  Transmission Date: 20240110
  Serious: No
  Sender: FDA-Public Use
  Company Number: US-Encube-000479

PATIENT
  Age: 84 Year
  Sex: Female

DRUGS (5)
  1. DICLOFENAC SODIUM [Suspect]
     Active Substance: DICLOFENAC\DICLOFENAC SODIUM
     Indication: Pain in extremity
     Dosage: TWO OR THREE DAYS AGO
     Dates: start: 202309, end: 20230919
  2. LISINOPRIL [Concomitant]
     Active Substance: LISINOPRIL
     Indication: Hypertension
  3. TOPROL XL [Concomitant]
     Active Substance: METOPROLOL SUCCINATE
  4. SIMVASTATIN [Concomitant]
     Active Substance: SIMVASTATIN
     Indication: Blood cholesterol
  5. GABAPENTIN [Concomitant]
     Active Substance: GABAPENTIN

REACTIONS (8)
  - Application site pruritus [Not Recovered/Not Resolved]
  - Application site pain [Not Recovered/Not Resolved]
  - Nausea [Unknown]
  - Illness [Unknown]
  - Heart rate irregular [Unknown]
  - Feeling hot [Unknown]
  - Drug ineffective [Unknown]
  - Drug hypersensitivity [Unknown]

NARRATIVE: CASE EVENT DATE: 20230901
